FAERS Safety Report 8133071-X (Version None)
Quarter: 2012Q1

REPORT INFORMATION
  Report Type: 
  Country: None (occurrence: None)
  Receive Date: 20120213
  Receipt Date: 20120206
  Transmission Date: 20120608
  Serious: Yes (Other)
  Sender: FDA-Public Use
  Company Number: PHHY2012FR009277

PATIENT
  Age: 76 Year
  Sex: Female

DRUGS (3)
  1. ONBREZ [Suspect]
     Indication: CHRONIC OBSTRUCTIVE PULMONARY DISEASE
     Dosage: 150 UG, QD
  2. ANTIHYPERTENSIVE DRUGS [Concomitant]
  3. PREVISCAN [Concomitant]

REACTIONS (1)
  - ANGIOEDEMA [None]
